FAERS Safety Report 7563439-1 (Version None)
Quarter: 2011Q2

REPORT INFORMATION
  Report Type: 
  Country: None (occurrence: None)
  Receive Date: 20110622
  Receipt Date: 20110614
  Transmission Date: 20111010
  Serious: Yes (Other)
  Sender: FDA-Public Use
  Company Number: B0727781A

PATIENT
  Age: 65 Year
  Sex: Female

DRUGS (1)
  1. LAPATINIB [Suspect]
     Route: 065

REACTIONS (1)
  - CARDIOTOXICITY [None]
